FAERS Safety Report 4955213-7 (Version None)
Quarter: 2006Q1

REPORT INFORMATION
  Report Type: 
  Country: None (occurrence: None)
  Receive Date: 20060322
  Receipt Date: 20060309
  Transmission Date: 20060701
  Serious: Yes (Hospitalization, Other)
  Sender: FDA-Public Use
  Company Number: 2006034591

PATIENT
  Age: 51 Year
  Sex: Female

DRUGS (6)
  1. GEODON [Suspect]
     Indication: ILL-DEFINED DISORDER
     Dosage: (80 MG)
  2. XANAX [Suspect]
     Indication: ILL-DEFINED DISORDER
  3. TOPAMAX [Suspect]
     Indication: ILL-DEFINED DISORDER
     Dosage: (90 MG)
  4. UNIVASC [Suspect]
     Indication: ILL-DEFINED DISORDER
  5. ESTROGENS (ESTROGENS) [Suspect]
     Indication: ILL-DEFINED DISORDER
  6. ALCOHOL (ETHANOL) [Suspect]
     Indication: ILL-DEFINED DISORDER
     Dosage: ORAL
     Route: 048

REACTIONS (6)
  - ALCOHOL USE [None]
  - BLOOD MAGNESIUM DECREASED [None]
  - ELECTROCARDIOGRAM QT CORRECTED INTERVAL PROLONGED [None]
  - HYPOKALAEMIA [None]
  - MULTIPLE DRUG OVERDOSE INTENTIONAL [None]
  - SUICIDE ATTEMPT [None]
